FAERS Safety Report 4368684-4 (Version None)
Quarter: 2004Q2

REPORT INFORMATION
  Report Type: 
  Country: None (occurrence: None)
  Receive Date: 20040602
  Receipt Date: 20040521
  Transmission Date: 20050107
  Serious: Yes (Hospitalization)
  Sender: FDA-Public Use
  Company Number: 2004-04-1294

PATIENT
  Age: 69 Year
  Sex: Male
  Weight: 54 kg

DRUGS (6)
  1. REBETOL [Suspect]
     Indication: HEPATITIS C
     Dosage: 600 MG QD ORAL
     Route: 048
     Dates: start: 20030603, end: 20030929
  2. INTRON A [Suspect]
     Indication: HEPATITIS C
     Dosage: 6 MIU TIW INTRAMUSCULAR; INTRAMUSCULAR
     Route: 030
     Dates: start: 20030606, end: 20030923
  3. INTRON A [Suspect]
     Indication: HEPATITIS C
     Dosage: 6 MIU TIW INTRAMUSCULAR; INTRAMUSCULAR
     Route: 030
     Dates: start: 20040330, end: 20040412
  4. IMIDAPRIL HCL [Concomitant]
  5. CLINIDIPINE [Concomitant]
  6. DOXAZOSIN MESYLATE [Concomitant]

REACTIONS (1)
  - HEPATIC NEOPLASM MALIGNANT RECURRENT [None]
